FAERS Safety Report 8041054-3 (Version None)
Quarter: 2012Q1

REPORT INFORMATION
  Report Type: 
  Country: None (occurrence: None)
  Receive Date: 20120112
  Receipt Date: 20120104
  Transmission Date: 20120608
  Serious: Yes (Other)
  Sender: FDA-Public Use
  Company Number: US-BAYER-2012-003059

PATIENT
  Age: 20 Year
  Sex: Female

DRUGS (2)
  1. DROSPIRENONE AND ETHINYL ESTRADIOL [Suspect]
     Dosage: UNK
     Route: 048
     Dates: start: 20110401, end: 20110701
  2. YAZ [Suspect]
     Dosage: UNK
     Route: 048
     Dates: start: 20060101, end: 20110101

REACTIONS (6)
  - EMOTIONAL DISTRESS [None]
  - INJURY [None]
  - PAIN [None]
  - CHOLECYSTECTOMY [None]
  - NERVOUSNESS [None]
  - DEPRESSION [None]
